FAERS Safety Report 4968032-2 (Version None)
Quarter: 2006Q2

REPORT INFORMATION
  Report Type: 
  Country: None (occurrence: None)
  Receive Date: 20060405
  Receipt Date: 20060320
  Transmission Date: 20061013
  Serious: No
  Sender: FDA-Public Use
  Company Number: 34350

PATIENT
  Age: 73 Year
  Sex: Female

DRUGS (1)
  1. TRAVATAN [Suspect]
     Route: 047

REACTIONS (1)
  - ANAPHYLACTIC SHOCK [None]
